FAERS Safety Report 25139753 (Version 3)
Quarter: 2025Q4

REPORT INFORMATION
  Report Type: Report from Study
  Country: US (occurrence: US)
  Receive Date: 20250331
  Receipt Date: 20251214
  Transmission Date: 20260117
  Serious: Yes (Hospitalization, Other)
  Sender: ALEXION PHARMACEUTICALS
  Company Number: US-AstraZeneca-CH-00836334A

PATIENT

DRUGS (2)
  1. SOLIRIS [Suspect]
     Active Substance: ECULIZUMAB
     Indication: Myasthenia gravis
     Dosage: UNK
     Route: 065
  2. HUMAN IMMUNOGLOBULIN G [Concomitant]
     Active Substance: HUMAN IMMUNOGLOBULIN G
     Dosage: UNK

REACTIONS (10)
  - Asthenia [Unknown]
  - Seizure [Unknown]
  - Fall [Unknown]
  - Eyelid ptosis [Unknown]
  - Loss of consciousness [Unknown]
  - Loss of bladder sensation [Unknown]
  - Eating disorder [Unknown]
  - Diarrhoea [Unknown]
  - Joint stiffness [Unknown]
  - Arthralgia [Unknown]
